FAERS Safety Report 20988748 (Version 6)
Quarter: 2022Q3

REPORT INFORMATION
  Report Type: Report from Study
  Country: US (occurrence: US)
  Receive Date: 20220621
  Receipt Date: 20220817
  Transmission Date: 20221027
  Serious: Yes (Other)
  Sender: FDA-Public Use
  Company Number: US-NOVARTISTESTPH-NVSC2022US142177

PATIENT
  Age: 80 Year
  Sex: Female

DRUGS (11)
  1. ENTRESTO [Suspect]
     Active Substance: SACUBITRIL\VALSARTAN
     Indication: Cardiac failure congestive
     Dosage: UNK UNK, BID
     Route: 065
  2. ENTRESTO [Suspect]
     Active Substance: SACUBITRIL\VALSARTAN
     Dosage: 0.5 DOSAGE FORM, BID (24/26 MG) IN THE MORNING AND BEFORE BED TIME) 90 TABLETES
     Route: 048
  3. METOPROLOL SUCCINATE [Concomitant]
     Active Substance: METOPROLOL SUCCINATE
     Indication: Product used for unknown indication
     Dosage: 0.5 DOSAGE FORM, QHS 25 MG (DO NOT CRUSH AND CHEW)
     Route: 048
     Dates: start: 20220614
  4. FARXIGA [Concomitant]
     Active Substance: DAPAGLIFLOZIN PROPANEDIOL
     Indication: Product used for unknown indication
     Dosage: 1 DOSAGE FORM, QD (BY MOUTH ONE TIME EACH DAY)
     Route: 048
     Dates: start: 20220614
  5. ALBUTEROL [Concomitant]
     Active Substance: ALBUTEROL
     Indication: Product used for unknown indication
     Dosage: UNK
     Route: 055
     Dates: start: 20220503
  6. ASCORBIC ACID [Concomitant]
     Active Substance: ASCORBIC ACID
     Indication: Product used for unknown indication
     Dosage: 1 DOSAGE FORM, QD
     Route: 048
  7. NOVOLOG [Concomitant]
     Active Substance: INSULIN ASPART
     Indication: Type 2 diabetes mellitus
     Dosage: UNK (100 UNIT/ML)
     Route: 065
  8. MICRO K [Concomitant]
     Indication: Product used for unknown indication
     Dosage: 1 DOSAGE FORM, QOD (45 CAPSULES)
     Route: 048
  9. ALDACTONE [Concomitant]
     Active Substance: SPIRONOLACTONE
     Indication: Product used for unknown indication
     Dosage: 0.5 DOSAGE FORM, QD (12.5 MG), (12.5 MG TOTAL) 45 TABLETS
     Route: 048
     Dates: start: 20220412
  10. CHOLECALCIFEROL [Concomitant]
     Active Substance: CHOLECALCIFEROL
     Indication: Product used for unknown indication
     Dosage: 1 DOSAGE FORM, QD (1000 UNIT 5 CAPUSLES)
     Route: 048
  11. TRICOR [Concomitant]
     Active Substance: FENOFIBRATE
     Indication: Product used for unknown indication
     Dosage: UNK
     Route: 065
     Dates: start: 20171206

REACTIONS (17)
  - Chronic kidney disease [Unknown]
  - Hypothyroidism [Unknown]
  - Rheumatoid arthritis [Unknown]
  - Hypotension [Unknown]
  - Dilatation atrial [Unknown]
  - Dyspnoea exertional [Unknown]
  - Fatigue [Unknown]
  - Ejection fraction abnormal [Unknown]
  - Breakthrough pain [Unknown]
  - Arthralgia [Unknown]
  - Humerus fracture [Unknown]
  - Platelet count decreased [Unknown]
  - Blood creatine increased [Unknown]
  - Blood urea increased [Unknown]
  - Memory impairment [Unknown]
  - Prescribed underdose [Unknown]
  - Wrong technique in product usage process [Unknown]

NARRATIVE: CASE EVENT DATE: 20210924
